FAERS Safety Report 16525240 (Version 4)
Quarter: 2021Q4

REPORT INFORMATION
  Report Type: Report from Study
  Country: JP (occurrence: JP)
  Receive Date: 20190703
  Receipt Date: 20211007
  Transmission Date: 20220303
  Serious: Yes (Life-Threatening, Hospitalization)
  Sender: FDA-Public Use
  Company Number: JP-RECORDATI RARE DISEASES INC.-JP-R13005-19-00171

PATIENT
  Sex: Male
  Weight: 2.18 kg

DRUGS (4)
  1. NEOPROFEN [Suspect]
     Active Substance: IBUPROFEN LYSINE
     Indication: Patent ductus arteriosus
     Dosage: 22 MILLIGRAM, QD
     Route: 042
     Dates: start: 20181218, end: 20181218
  2. NEOPROFEN [Suspect]
     Active Substance: IBUPROFEN LYSINE
     Dosage: 11 MILLIGRAM, QD
     Route: 042
     Dates: start: 20181219, end: 20181219
  3. NEOPROFEN [Suspect]
     Active Substance: IBUPROFEN LYSINE
     Dosage: 11 MILLIGRAM, QD
     Route: 042
     Dates: start: 20181220, end: 20181220
  4. FUROSEMIDE [Concomitant]
     Active Substance: FUROSEMIDE
     Indication: Cardiac failure
     Dosage: UNK, UNK
     Route: 065
     Dates: start: 20181218, end: 20181220

REACTIONS (5)
  - Ascites [Recovered/Resolved]
  - Disseminated intravascular coagulation [Recovered/Resolved]
  - Infection [Recovered/Resolved]
  - Seizure [Recovered/Resolved]
  - Off label use [Unknown]

NARRATIVE: CASE EVENT DATE: 20181221
